FAERS Safety Report 5921076-6 (Version None)
Quarter: 2008Q4

REPORT INFORMATION
  Report Type: 
  Country: None (occurrence: None)
  Receive Date: 20081016
  Receipt Date: 20081007
  Transmission Date: 20090506
  Serious: Yes (Other)
  Sender: FDA-Public Use
  Company Number: GB-PFIZER INC-2008084772

PATIENT

DRUGS (1)
  1. EPANUTIN INJECTABLE [Suspect]
     Route: 042

REACTIONS (2)
  - INJECTION SITE EXTRAVASATION [None]
  - INJECTION SITE INJURY [None]
